FAERS Safety Report 24939078 (Version 2)
Quarter: 2025Q1

REPORT INFORMATION
  Report Type: Spontaneous
  Country: US (occurrence: US)
  Receive Date: 20250206
  Receipt Date: 20250227
  Transmission Date: 20250409
  Serious: Yes (Hospitalization)
  Sender: CALLIDITAS THERAPEUTICS AB
  Company Number: US-Calliditas-2024CAL02553

PATIENT
  Age: 13 Year
  Sex: Male

DRUGS (1)
  1. TARPEYO [Suspect]
     Active Substance: BUDESONIDE
     Indication: Henoch-Schonlein purpura
     Dosage: TAKE ONE CAPSULE BY MOUTH DAILY
     Route: 048
     Dates: start: 20241113

REACTIONS (6)
  - Off label use [Not Recovered/Not Resolved]
  - Off label use [Unknown]
  - Prescribed underdose [Recovered/Resolved]
  - Proteinuria [Unknown]
  - Blood urine present [Unknown]
  - Dialysis [Unknown]

NARRATIVE: CASE EVENT DATE: 20250202
